FAERS Safety Report 4585054-4 (Version None)
Quarter: 2005Q1

REPORT INFORMATION
  Report Type: 
  Country: None (occurrence: None)
  Receive Date: 20050217
  Receipt Date: 20041215
  Transmission Date: 20050727
  Serious: No
  Sender: FDA-Public Use
  Company Number: US-GLAXOSMITHKLINE-A0537422A

PATIENT
  Age: 53 Year
  Sex: Female

DRUGS (6)
  1. WELLBUTRIN XL [Suspect]
     Indication: DEPRESSION
     Dosage: 150MG PER DAY
     Route: 048
     Dates: start: 20041209
  2. BENADRYL [Concomitant]
     Route: 065
  3. INSULIN [Concomitant]
  4. ESTROGEN PATCH [Concomitant]
  5. ASPIRIN [Concomitant]
  6. METHYLTESTOSTERONE [Concomitant]

REACTIONS (1)
  - INSOMNIA [None]
